FAERS Safety Report 4713651-1 (Version None)
Quarter: 2005Q3

REPORT INFORMATION
  Report Type: 
  Country: None (occurrence: None)
  Receive Date: 20050712
  Receipt Date: 20050626
  Transmission Date: 20060218
  Serious: Yes (Hospitalization)
  Sender: FDA-Public Use
  Company Number: S05-FRA-02365-01

PATIENT
  Sex: Female

DRUGS (1)
  1. MONUROL [Suspect]
     Dosage: 3 G QD PO
     Route: 048

REACTIONS (1)
  - CLOSTRIDIUM COLITIS [None]
